FAERS Safety Report 4740977-8 (Version None)
Quarter: 2005Q3

REPORT INFORMATION
  Report Type: 
  Country: None (occurrence: None)
  Receive Date: 20050810
  Receipt Date: 20050525
  Transmission Date: 20060218
  Serious: No
  Sender: FDA-Public Use
  Company Number: US-GLAXOSMITHKLINE-A0560134A

PATIENT
  Age: 49 Year
  Sex: Female

DRUGS (2)
  1. PAROXETINE HCL [Suspect]
     Indication: DEPRESSION
     Dosage: 30MG PER DAY
     Route: 048
     Dates: start: 20050513
  2. LEXAPRO [Suspect]
     Indication: POST-TRAUMATIC STRESS DISORDER
     Dosage: 10MG PER DAY
     Route: 048
     Dates: start: 20050401, end: 20050512

REACTIONS (4)
  - AMNESIA [None]
  - DRUG INEFFECTIVE [None]
  - NERVOUSNESS [None]
  - PANIC ATTACK [None]
